FAERS Safety Report 5673213-9 (Version None)
Quarter: 2008Q2

REPORT INFORMATION
  Report Type: 
  Country: None (occurrence: None)
  Receive Date: 20080219
  Receipt Date: 20071203
  Transmission Date: 20081010
  Serious: No
  Sender: FDA-Public Use
  Company Number: TPA2007A02450

PATIENT
  Sex: Female

DRUGS (2)
  1. ROZEREM [Suspect]
     Indication: INITIAL INSOMNIA
     Dosage: 8 MG, QHS, PER ORAL
     Route: 048
     Dates: start: 20071101, end: 20071101
  2. ROZEREM [Suspect]
     Indication: MIDDLE INSOMNIA
     Dosage: 8 MG, QHS, PER ORAL
     Route: 048
     Dates: start: 20071101, end: 20071101

REACTIONS (13)
  - ABDOMINAL DISCOMFORT [None]
  - ABDOMINAL DISTENSION [None]
  - AFFECT LABILITY [None]
  - AGITATION [None]
  - ANGER [None]
  - CRYING [None]
  - DEPRESSION [None]
  - DRUG INEFFECTIVE [None]
  - ERUCTATION [None]
  - IRRITABILITY [None]
  - NAUSEA [None]
  - STRESS [None]
  - TENDERNESS [None]
